FAERS Safety Report 7156575-5 (Version None)
Quarter: 2010Q4

REPORT INFORMATION
  Report Type: 
  Country: None (occurrence: None)
  Receive Date: 20101214
  Receipt Date: 20091105
  Transmission Date: 20110411
  Serious: No
  Sender: FDA-Public Use
  Company Number: US-ASTRAZENECA-2009SE25124

PATIENT
  Age: 23393 Day
  Sex: Female

DRUGS (2)
  1. CRESTOR [Suspect]
     Indication: BLOOD CHOLESTEROL
     Route: 048
     Dates: start: 20091014, end: 20091029
  2. CRESTOR [Suspect]
     Route: 048

REACTIONS (1)
  - SENSATION OF HEAVINESS [None]
